FAERS Safety Report 23215731 (Version 1)
Quarter: 2023Q4

REPORT INFORMATION
  Report Type: Spontaneous
  Country: JM (occurrence: JM)
  Receive Date: 20231122
  Receipt Date: 20231122
  Transmission Date: 20240110
  Serious: Yes (Other)
  Sender: FDA-Public Use
  Company Number: JM-SANDOZ-SDZ2023JM056627

PATIENT
  Sex: Female

DRUGS (1)
  1. ACLASTA [Suspect]
     Active Substance: ZOLEDRONIC ACID
     Indication: Osteoporosis
     Dosage: UNK
     Route: 065
     Dates: start: 20231110

REACTIONS (10)
  - Loss of consciousness [Unknown]
  - Syncope [Unknown]
  - Eye movement disorder [Unknown]
  - Polyarthritis [Unknown]
  - Nausea [Unknown]
  - Arthralgia [Unknown]
  - Chills [Unknown]
  - Headache [Unknown]
  - Vomiting [Unknown]
  - Gastritis [Unknown]

NARRATIVE: CASE EVENT DATE: 20231110
